FAERS Safety Report 19749074 (Version 2)
Quarter: 2021Q3

REPORT INFORMATION
  Report Type: Spontaneous
  Country: FR (occurrence: FR)
  Receive Date: 20210826
  Receipt Date: 20210910
  Transmission Date: 20211014
  Serious: Yes (Other)
  Sender: FDA-Public Use
  Company Number: FR-BIOVITRUM-2021FR7632

PATIENT
  Age: 21 Year
  Sex: Female
  Weight: 43 kg

DRUGS (7)
  1. KINERET [Suspect]
     Active Substance: ANAKINRA
     Indication: STILL^S DISEASE
     Dosage: 100 MG / DAY
     Route: 058
     Dates: start: 20210708, end: 20210727
  2. EAU POUR PREPARATIONS INJECTABLES [Concomitant]
     Active Substance: WATER
  3. CITRATE DE SODIUM [Concomitant]
  4. EDETATE DISODIQUE [Concomitant]
  5. CHLORURE DE SODIUM [Concomitant]
     Active Substance: SODIUM CHLORIDE
  6. POLYSORBATE 80. [Concomitant]
     Active Substance: POLYSORBATE 80
  7. HYDROXYDE DE SODIUM [Concomitant]

REACTIONS (2)
  - Haemophagocytic lymphohistiocytosis [Not Recovered/Not Resolved]
  - Hepatic cytolysis [Not Recovered/Not Resolved]

NARRATIVE: CASE EVENT DATE: 20210715
